FAERS Safety Report 5201531-7 (Version None)
Quarter: 2007Q1

REPORT INFORMATION
  Report Type: 
  Country: None (occurrence: None)
  Receive Date: 20070104
  Receipt Date: 20061227
  Transmission Date: 20070707
  Serious: Yes (Hospitalization)
  Sender: FDA-Public Use
  Company Number: 163-21880-06120147

PATIENT
  Age: 90 Year
  Sex: Male

DRUGS (4)
  1. REVLIMID [Suspect]
     Indication: LYMPHATIC DISORDER
     Dosage: 10 MG, 1 IN 1 D, ORAL
     Route: 048
     Dates: start: 20060929, end: 20061120
  2. REVLIMID [Suspect]
     Indication: MYELODYSPLASTIC SYNDROME
     Dosage: 10 MG, 1 IN 1 D, ORAL
     Route: 048
     Dates: start: 20060929, end: 20061120
  3. REVLIMID [Suspect]
     Indication: LYMPHATIC DISORDER
     Dosage: 10 MG, 1 IN 1 D, ORAL
     Route: 048
     Dates: start: 20061227
  4. REVLIMID [Suspect]
     Indication: MYELODYSPLASTIC SYNDROME
     Dosage: 10 MG, 1 IN 1 D, ORAL
     Route: 048
     Dates: start: 20061227

REACTIONS (4)
  - FALL [None]
  - HIP FRACTURE [None]
  - TRANSFUSION REACTION [None]
  - WHITE BLOOD CELL COUNT DECREASED [None]
